FAERS Safety Report 4337795-1 (Version None)
Quarter: 2004Q2

REPORT INFORMATION
  Report Type: 
  Country: None (occurrence: None)
  Receive Date: 20040408
  Receipt Date: 20040325
  Transmission Date: 20050107
  Serious: Yes (Life-Threatening, Hospitalization)
  Sender: FDA-Public Use
  Company Number: 2004-06844

PATIENT
  Sex: Male

DRUGS (3)
  1. VIREAD [Suspect]
     Indication: HIV INFECTION
     Dosage: 300 MG, ONCE A DAY, ORAL
     Route: 048
     Dates: start: 20030730, end: 20031203
  2. VIDEX (DIDANOSINE)  (250 MILLIGRAM, TABLET) [Concomitant]
  3. KALETRA (KALETRA) (TABLET) [Concomitant]

REACTIONS (4)
  - CARDIAC FAILURE [None]
  - HYPERTENSIVE ENCEPHALOPATHY [None]
  - RENAL IMPAIRMENT [None]
  - RENAL TUBULAR NECROSIS [None]
